FAERS Safety Report 4433997-4 (Version None)
Quarter: 2004Q3

REPORT INFORMATION
  Report Type: 
  Country: None (occurrence: None)
  Receive Date: 20040825
  Receipt Date: 20040806
  Transmission Date: 20050211
  Serious: Yes (Other)
  Sender: FDA-Public Use
  Company Number: DSA_24659_2004

PATIENT
  Age: 71 Year
  Sex: Female
  Weight: 58.9676 kg

DRUGS (2)
  1. NIFEDIPINE [Suspect]
     Indication: HYPERTENSION
     Dosage: 80 MG QD PO
     Route: 048
     Dates: start: 20040501, end: 20040701
  2. NIFEDIPINE [Suspect]
     Indication: HYPERTENSION
     Dosage: 60 MG QD PO
     Route: 048

REACTIONS (1)
  - BLOOD PRESSURE INCREASED [None]
